FAERS Safety Report 6970723-9 (Version None)
Quarter: 2010Q3

REPORT INFORMATION
  Report Type: 
  Country: None (occurrence: None)
  Receive Date: 20100908
  Receipt Date: 20100831
  Transmission Date: 20110219
  Serious: Yes (Hospitalization)
  Sender: FDA-Public Use
  Company Number: FR-JNJFOC-20100403328

PATIENT
  Sex: Female
  Weight: 50 kg

DRUGS (4)
  1. RISPERDAL CONSTA [Suspect]
     Indication: PSYCHOTIC DISORDER
     Route: 030
  2. TOPIRAMATE [Suspect]
     Indication: EPILEPSY
     Route: 048
  3. TERCIAN [Suspect]
     Indication: PSYCHOTIC DISORDER
     Route: 065
  4. RIVOTRIL [Suspect]
     Indication: PRODUCT USED FOR UNKNOWN INDICATION
     Route: 048

REACTIONS (2)
  - DEEP VEIN THROMBOSIS [None]
  - OFF LABEL USE [None]
